FAERS Safety Report 7463860-6 (Version None)
Quarter: 2011Q2

REPORT INFORMATION
  Report Type: 
  Country: None (occurrence: None)
  Receive Date: 20110506
  Receipt Date: 20110426
  Transmission Date: 20111010
  Serious: Yes (Death, Hospitalization)
  Sender: FDA-Public Use
  Company Number: CA-JNJFOC-20110411349

PATIENT
  Sex: Female
  Weight: 32.66 kg

DRUGS (1)
  1. REMICADE [Suspect]
     Indication: TAKAYASU'S ARTERITIS
     Route: 042

REACTIONS (2)
  - CONVULSION [None]
  - CEREBROVASCULAR ACCIDENT [None]
